FAERS Safety Report 18356247 (Version 2)
Quarter: 2020Q4

REPORT INFORMATION
  Report Type: Report from Study
  Country: CA (occurrence: CA)
  Receive Date: 20201007
  Receipt Date: 20201102
  Transmission Date: 20210114
  Serious: Yes (Other)
  Sender: FDA-Public Use
  Company Number: CA-JNJFOC-20200618669

PATIENT
  Age: 31 Year
  Sex: Female
  Weight: 94 kg

DRUGS (2)
  1. STELARA [Suspect]
     Active Substance: USTEKINUMAB
     Route: 058
  2. STELARA [Suspect]
     Active Substance: USTEKINUMAB
     Indication: HIDRADENITIS
     Dosage: ON 02-JUL-2020, THE PATIENT RECEIVED HER 1ST DOSE 520 MG OF USTEKINUMAB.
     Route: 042
     Dates: start: 20200702

REACTIONS (5)
  - Pyoderma gangrenosum [Unknown]
  - Tooth infection [Recovered/Resolved]
  - Off label use [Unknown]
  - Skin lesion [Unknown]
  - Product use in unapproved indication [Unknown]

NARRATIVE: CASE EVENT DATE: 20200702
